FAERS Safety Report 4698377-5 (Version None)
Quarter: 2005Q2

REPORT INFORMATION
  Report Type: 
  Country: None (occurrence: None)
  Receive Date: 20050621
  Receipt Date: 20050609
  Transmission Date: 20051028
  Serious: Yes (Death, Hospitalization)
  Sender: FDA-Public Use
  Company Number: 200510373BNE

PATIENT
  Age: 91 Year
  Sex: Female

DRUGS (5)
  1. CIPROFLOXACIN [Suspect]
     Indication: URINARY TRACT INFECTION
     Dosage: 500 MG, BID, ORAL
     Route: 048
     Dates: start: 20050331, end: 20050407
  2. RANITIDINE [Concomitant]
  3. LACIDIPINE [Concomitant]
  4. ASPIRIN [Concomitant]
  5. CEFOTAXIME [Concomitant]

REACTIONS (4)
  - BLOOD CREATININE INCREASED [None]
  - RENAL FAILURE ACUTE [None]
  - SYNCOPE [None]
  - URINARY RETENTION [None]
